FAERS Safety Report 6738914-X (Version None)
Quarter: 2010Q2

REPORT INFORMATION
  Report Type: 
  Country: None (occurrence: None)
  Receive Date: 20100524
  Receipt Date: 20100513
  Transmission Date: 20101027
  Serious: Yes (Hospitalization)
  Sender: FDA-Public Use
  Company Number: JP-AMGEN-US397584

PATIENT
  Sex: Male
  Weight: 69 kg

DRUGS (8)
  1. ENBREL [Suspect]
     Indication: RHEUMATOID ARTHRITIS
     Route: 058
     Dates: start: 20100301
  2. ENBREL [Suspect]
     Dosage: DOSE UNKNOWN
     Route: 058
     Dates: start: 20090306, end: 20100212
  3. METHOTREXATE [Suspect]
     Indication: RHEUMATOID ARTHRITIS
     Route: 048
     Dates: start: 20070801, end: 20100215
  4. ISCOTIN [Concomitant]
     Dosage: 50, UNITS AND FREQUENCY UNSPECIFIED
     Route: 054
     Dates: start: 20090220, end: 20100215
  5. CYTOTEC [Concomitant]
     Route: 048
  6. VOLTAREN [Concomitant]
     Route: 048
  7. PREDONINE [Concomitant]
     Route: 048
  8. PREDONINE [Concomitant]
     Route: 048

REACTIONS (1)
  - LYMPHOMA [None]
